FAERS Safety Report 15233190 (Version 1)
Quarter: 2018Q3

REPORT INFORMATION
  Report Type: Spontaneous
  Country: JP (occurrence: JP)
  Receive Date: 20180802
  Receipt Date: 20180802
  Transmission Date: 20181010
  Serious: Yes (Hospitalization)
  Sender: FDA-Public Use
  Company Number: JP-MYLANLABS-2018M1057759

PATIENT
  Age: 79 Year
  Sex: Male

DRUGS (1)
  1. ESOMEPRAZOLE [Suspect]
     Active Substance: ESOMEPRAZOLE
     Indication: PRODUCT USED FOR UNKNOWN INDICATION
     Dosage: 20 MG
     Route: 065

REACTIONS (6)
  - Gastrointestinal injury [Unknown]
  - Intestinal obstruction [Recovered/Resolved]
  - Ileal stenosis [Unknown]
  - Ascites [Unknown]
  - Gastrointestinal inflammation [Unknown]
  - Intestinal haemorrhage [Unknown]
